FAERS Safety Report 8853307 (Version 1)
Quarter: 2012Q4

REPORT INFORMATION
  Report Type: 
  Country: JP (occurrence: JP)
  Receive Date: 20121022
  Receipt Date: 20121022
  Transmission Date: 20130627
  Serious: Yes (Hospitalization)
  Sender: FDA-Public Use
  Company Number: JP-WATSON-2012-17852

PATIENT
  Age: 70 Year
  Sex: Female

DRUGS (1)
  1. PREGABALIN [Suspect]
     Indication: NEURALGIA
     Dosage: 75 mg, daily
     Route: 065

REACTIONS (3)
  - Erythema multiforme [Recovered/Resolved]
  - Incorrect drug administration duration [None]
  - Lymphocyte stimulation test positive [None]
